FAERS Safety Report 23341333 (Version 1)
Quarter: 2023Q4

REPORT INFORMATION
  Report Type: Spontaneous
  Country: IT (occurrence: IT)
  Receive Date: 20231227
  Receipt Date: 20231227
  Transmission Date: 20240109
  Serious: Yes (Hospitalization, Disabling, Other)
  Sender: FDA-Public Use
  Company Number: None

PATIENT
  Age: 64 Year
  Sex: Male
  Weight: 50 kg

DRUGS (2)
  1. PRAMIPEXOLE [Suspect]
     Active Substance: PRAMIPEXOLE
     Indication: Parkinsonism
     Dosage: PRAMIPEXOLE 0.7 MG 4 TIMES A DAY (6.00-12.00-18.00-00.00). FROM TODAY, GRADUAL REDUCTION OF THE DRUG
  2. SINEMET [Concomitant]
     Active Substance: CARBIDOPA\LEVODOPA
     Indication: Parkinson^s disease
     Dosage: SINEMET 250\25MG 5 TIMES/DAY (INTAKE REPORTED BY FAMILY MEMBERS IS NOT CONSTANT AND EPISODIC (IN CAS

REACTIONS (2)
  - Persecutory delusion [Not Recovered/Not Resolved]
  - Overdose [Unknown]

NARRATIVE: CASE EVENT DATE: 20220101
